FAERS Safety Report 5576254-5 (Version None)
Quarter: 2007Q4

REPORT INFORMATION
  Report Type: 
  Country: None (occurrence: None)
  Receive Date: 20071228
  Receipt Date: 20071217
  Transmission Date: 20080405
  Serious: Yes (Other)
  Sender: FDA-Public Use
  Company Number: US-ROCHE-537114

PATIENT
  Age: 57 Year
  Sex: Female

DRUGS (1)
  1. TAMIFLU [Suspect]
     Route: 048

REACTIONS (3)
  - HYPNAGOGIC HALLUCINATION [None]
  - INSOMNIA [None]
  - SELF INJURIOUS BEHAVIOUR [None]
